FAERS Safety Report 13043323 (Version 1)
Quarter: 2016Q4

REPORT INFORMATION
  Report Type: Report from Study
  Country: DE (occurrence: DE)
  Receive Date: 20161219
  Receipt Date: 20161219
  Transmission Date: 20170207
  Serious: Yes (Death, Hospitalization)
  Sender: FDA-Public Use
  Company Number: DE-ROCHE-1869640

PATIENT
  Sex: Female

DRUGS (9)
  1. AQUAPHOR [Concomitant]
     Active Substance: PETROLATUM
  2. ALLOPURINOL. [Concomitant]
     Active Substance: ALLOPURINOL
     Route: 065
  3. PREDNISOLON [Concomitant]
     Active Substance: PREDNISOLONE
  4. MARCUMAR [Concomitant]
     Active Substance: PHENPROCOUMON
     Indication: ATRIAL FIBRILLATION
  5. RITUXIMAB [Suspect]
     Active Substance: RITUXIMAB
     Indication: RHEUMATOID ARTHRITIS
     Route: 042
     Dates: end: 20160107
  6. VIANI [Concomitant]
     Active Substance: FLUTICASONE PROPIONATE\SALMETEROL XINAFOATE
  7. RANI [Concomitant]
  8. TORASEMID [Concomitant]
     Active Substance: TORSEMIDE
  9. DEKRISTOL [Concomitant]
     Active Substance: CHOLECALCIFEROL

REACTIONS (2)
  - Multiple organ dysfunction syndrome [Fatal]
  - Urosepsis [Fatal]

NARRATIVE: CASE EVENT DATE: 20160507
